FAERS Safety Report 25364897 (Version 4)
Quarter: 2025Q4

REPORT INFORMATION
  Report Type: Spontaneous
  Country: US (occurrence: US)
  Receive Date: 20250527
  Receipt Date: 20251003
  Transmission Date: 20260118
  Serious: Yes (Life-Threatening, Hospitalization, Other)
  Sender: BIOMARIN
  Company Number: US-BIOMARINAP-US-2025-166092

PATIENT
  Age: 43 Year
  Sex: Female
  Weight: 57.596 kg

DRUGS (10)
  1. PALYNZIQ [Suspect]
     Active Substance: PEGVALIASE-PQPZ
     Indication: Phenylketonuria
     Dosage: 20 MILLIGRAM, QD
  2. PALYNZIQ [Suspect]
     Active Substance: PEGVALIASE-PQPZ
     Dosage: 10 MILLIGRAM, QOD
  3. KUVAN [Suspect]
     Active Substance: SAPROPTERIN DIHYDROCHLORIDE
     Indication: Phenylketonuria
     Dosage: 1000 MILLIGRAM, QD
     Dates: start: 20250512
  4. FAMOTIDINE [Concomitant]
     Active Substance: FAMOTIDINE
     Indication: Product used for unknown indication
     Dosage: 20 MILLIGRAM, BID
  5. FAMOTIDINE [Concomitant]
     Active Substance: FAMOTIDINE
     Dosage: 40 MILLIGRAM, QD
  6. CETIRIZINE [Concomitant]
     Active Substance: CETIRIZINE HYDROCHLORIDE
     Indication: Product used for unknown indication
     Dosage: 10 MILLIGRAM, QD
  7. CETIRIZINE [Concomitant]
     Active Substance: CETIRIZINE HYDROCHLORIDE
     Dosage: 20 MILLIGRAM, QD
  8. DIPHENHYDRAMINE [Concomitant]
     Active Substance: DIPHENHYDRAMINE
     Indication: Pruritus
     Dosage: 25 MILLIGRAM, PRN
  9. VITAMIN D [Concomitant]
     Active Substance: VITAMIN D NOS
     Indication: Product used for unknown indication
     Dosage: 2000 MICROGRAM, QD
  10. Pku lophlex [Concomitant]
     Indication: Nutritional supplementation
     Dosage: UNK, QD
     Dates: start: 20240422

REACTIONS (14)
  - Anaphylactic reaction [Recovering/Resolving]
  - Face oedema [Recovering/Resolving]
  - Swelling face [Recovering/Resolving]
  - Angioedema [Recovering/Resolving]
  - Lip swelling [Recovering/Resolving]
  - Paraesthesia oral [Recovering/Resolving]
  - Chest discomfort [Recovering/Resolving]
  - Anxiety [Recovering/Resolving]
  - Hyperventilation [Recovering/Resolving]
  - Arthralgia [Unknown]
  - Swelling [Recovering/Resolving]
  - Drug intolerance [Unknown]
  - Drug titration error [Unknown]
  - Product dispensing error [Unknown]

NARRATIVE: CASE EVENT DATE: 20250520
